FAERS Safety Report 10006114 (Version 2)
Quarter: 2014Q1

REPORT INFORMATION
  Report Type: Spontaneous
  Country: US (occurrence: US)
  Receive Date: 20140313
  Receipt Date: 20140313
  Transmission Date: 20141002
  Serious: Yes (Death, Other)
  Sender: FDA-Public Use
  Company Number: US-CELGENEUS-163-21880-09091485

PATIENT
  Sex: 0

DRUGS (8)
  1. REVLIMID [Suspect]
     Indication: PLASMA CELL MYELOMA
     Dosage: 10 MILLIGRAM
     Route: 048
  2. REVLIMID [Suspect]
     Dosage: 15 MILLIGRAM
     Route: 048
  3. REVLIMID [Suspect]
     Dosage: 20 MILLIGRAM
     Route: 048
  4. REVLIMID [Suspect]
     Dosage: 25 MILLIGRAM
     Route: 048
  5. DEXAMETHASONE [Suspect]
     Indication: PLASMA CELL MYELOMA
     Dosage: 40 MILLIGRAM
     Route: 048
  6. VORINOSTAT [Suspect]
     Indication: PLASMA CELL MYELOMA
     Dosage: 300 MILLIGRAM
     Route: 048
  7. VORINOSTAT [Suspect]
     Dosage: 400 MILLIGRAM
     Route: 048
  8. ACETYLSALICYLIC ACID [Concomitant]
     Indication: THROMBOSIS PROPHYLAXIS
     Route: 065

REACTIONS (10)
  - Death [Fatal]
  - Diarrhoea [Unknown]
  - Septic shock [Unknown]
  - Syncope [Unknown]
  - Pneumonia [Unknown]
  - Neutropenia [Unknown]
  - Thrombocytopenia [Unknown]
  - Fatigue [Unknown]
  - Plasma cell myeloma [Unknown]
  - Cough [Unknown]
